FAERS Safety Report 5399525-4 (Version None)
Quarter: 2007Q3

REPORT INFORMATION
  Report Type: 
  Country: None (occurrence: None)
  Receive Date: 20070727
  Receipt Date: 20070716
  Transmission Date: 20080115
  Serious: Yes (Hospitalization, Other)
  Sender: FDA-Public Use
  Company Number: US-PFIZER INC-2006150460

PATIENT
  Sex: Female
  Weight: 57.6 kg

DRUGS (6)
  1. CELEBREX [Suspect]
     Indication: ARTHRITIS
     Route: 048
  2. VIOXX [Suspect]
     Indication: ARTHRITIS
     Route: 048
     Dates: start: 20001009
  3. ACETAMINOPHEN W/ CODEINE [Concomitant]
  4. CYCLOBENZAPRINE HCL [Concomitant]
     Dates: start: 19980216
  5. IMITREX [Concomitant]
     Dates: start: 20010511, end: 20020201
  6. METHYLPREDNISOLONE [Concomitant]
     Dates: start: 20000705, end: 20050803

REACTIONS (4)
  - CARDIAC FAILURE CONGESTIVE [None]
  - CARDIOVASCULAR DISORDER [None]
  - DEEP VEIN THROMBOSIS [None]
  - PULMONARY EMBOLISM [None]
